FAERS Safety Report 14848967 (Version 2)
Quarter: 2018Q2

REPORT INFORMATION
  Report Type: Spontaneous
  Country: US (occurrence: US)
  Receive Date: 20180504
  Receipt Date: 20180625
  Transmission Date: 20180711
  Serious: No
  Sender: FDA-Public Use
  Company Number: US-TEVA-2018-US-888167

PATIENT
  Sex: Female

DRUGS (4)
  1. PRANDIN [Concomitant]
     Active Substance: REPAGLINIDE
     Route: 065
  2. GLUCOPHAGE [Concomitant]
     Active Substance: METFORMIN HYDROCHLORIDE
     Route: 065
  3. PROAIR HFA [Concomitant]
     Active Substance: ALBUTEROL SULFATE
     Route: 065
  4. QVAR [Suspect]
     Active Substance: BECLOMETHASONE DIPROPIONATE
     Indication: ASTHMA
     Dosage: 2 INHALATIONS TWICE A DAY
     Route: 065

REACTIONS (7)
  - Dyspnoea [Recovered/Resolved]
  - Hunger [Unknown]
  - Abdominal distension [Recovered/Resolved]
  - Sinonasal obstruction [Not Recovered/Not Resolved]
  - Peripheral swelling [Recovered/Resolved]
  - Depression [Unknown]
  - Dyspnoea [Not Recovered/Not Resolved]

NARRATIVE: CASE EVENT DATE: 20180426
